FAERS Safety Report 11855053 (Version 4)
Quarter: 2016Q2

REPORT INFORMATION
  Report Type: Spontaneous
  Country: US (occurrence: US)
  Receive Date: 20151221
  Receipt Date: 20160504
  Transmission Date: 20160815
  Serious: No
  Sender: FDA-Public Use
  Company Number: US-ALEXION-A201505029

PATIENT
  Sex: Female

DRUGS (2)
  1. STRENSIQ [Suspect]
     Active Substance: ASFOTASE ALFA
     Dosage: 3 MG/KG, TIW
     Route: 058
  2. STRENSIQ [Suspect]
     Active Substance: ASFOTASE ALFA
     Indication: HYPOPHOSPHATASIA
     Dosage: 3 TIMES A WEEK
     Route: 058
     Dates: start: 20151125

REACTIONS (15)
  - Condition aggravated [Unknown]
  - Injection site reaction [Unknown]
  - Alopecia [Not Recovered/Not Resolved]
  - Injection site pruritus [Recovering/Resolving]
  - Nausea [Unknown]
  - Injection site mass [Recovering/Resolving]
  - Keratopathy [Unknown]
  - Headache [Not Recovered/Not Resolved]
  - Injection site erythema [Recovering/Resolving]
  - Fatigue [Not Recovered/Not Resolved]
  - Appetite disorder [Unknown]
  - Corneal deposits [Not Recovered/Not Resolved]
  - Chills [Unknown]
  - Pyrexia [Recovering/Resolving]
  - Eye pain [Not Recovered/Not Resolved]

NARRATIVE: CASE EVENT DATE: 20151125
